FAERS Safety Report 12300821 (Version 2)
Quarter: 2016Q2

REPORT INFORMATION
  Report Type: Spontaneous
  Country: JP (occurrence: JP)
  Receive Date: 20160425
  Receipt Date: 20160510
  Transmission Date: 20160815
  Serious: Yes (Other)
  Sender: FDA-Public Use
  Company Number: JP-AMGEN-JPNSP2016052715

PATIENT
  Age: 76 Year
  Sex: Male

DRUGS (2)
  1. OXAROL [Concomitant]
     Active Substance: MAXACALCITOL
     Dosage: 5 MUG, UNK
     Route: 040
  2. REGPARA [Suspect]
     Active Substance: CINACALCET HYDROCHLORIDE
     Indication: HYPERPARATHYROIDISM SECONDARY
     Dosage: 25 MG, UNK
     Route: 048
     Dates: start: 20081008

REACTIONS (1)
  - Electrocardiogram QT prolonged [Unknown]
